FAERS Safety Report 18204282 (Version 1)
Quarter: 2020Q3

REPORT INFORMATION
  Report Type: Report from Study
  Country: None (occurrence: US)
  Receive Date: 20200828
  Receipt Date: 20200828
  Transmission Date: 20201103
  Serious: Yes (Hospitalization, Other)
  Sender: FDA-Public Use
  Company Number: US-ABBVIE-20K-163-3466934-00

PATIENT
  Sex: Female

DRUGS (2)
  1. METOTRUST [Concomitant]
     Indication: PRODUCT USED FOR UNKNOWN INDICATION
  2. HUMIRA [Suspect]
     Active Substance: ADALIMUMAB
     Indication: RHEUMATOID ARTHRITIS
     Dosage: HUMIRA CITRATE FREE
     Route: 058
     Dates: start: 2019

REACTIONS (4)
  - Renal failure [Unknown]
  - Hepatic function abnormal [Unknown]
  - Non-Hodgkin^s lymphoma [Not Recovered/Not Resolved]
  - Stress [Not Recovered/Not Resolved]
